FAERS Safety Report 22647456 (Version 1)
Quarter: 2023Q2

REPORT INFORMATION
  Report Type: Spontaneous
  Country: LB (occurrence: LB)
  Receive Date: 20230628
  Receipt Date: 20230628
  Transmission Date: 20230721
  Serious: Yes (Hospitalization)
  Sender: FDA-Public Use
  Company Number: LB-AMGEN-LBNSP2023106799

PATIENT
  Age: 54 Year
  Sex: Female

DRUGS (1)
  1. CINACALCET HYDROCHLORIDE [Suspect]
     Active Substance: CINACALCET HYDROCHLORIDE
     Indication: Hyperparathyroidism secondary
     Dosage: UNK
     Route: 065

REACTIONS (8)
  - Hydronephrosis [Unknown]
  - Colorectal adenoma [Unknown]
  - Renal haemorrhage [Recovering/Resolving]
  - Acquired cystic kidney disease [Unknown]
  - Renal adenoma [Unknown]
  - Vascular calcification [Unknown]
  - Anaemia [Unknown]
  - Therapy non-responder [Unknown]
